FAERS Safety Report 8860374 (Version 2)
Quarter: 2012Q4

REPORT INFORMATION
  Report Type: 
  Country: DE (occurrence: DE)
  Receive Date: 20121025
  Receipt Date: 20121119
  Transmission Date: 20130627
  Serious: Yes (Hospitalization, Other)
  Sender: FDA-Public Use
  Company Number: DE-JNJFOC-20121006445

PATIENT
  Age: 36 Year
  Sex: Female

DRUGS (17)
  1. RISPERDAL [Suspect]
     Indication: PSYCHOTIC DISORDER
     Route: 065
  2. RISPERDAL CONSTA [Suspect]
     Indication: PSYCHOTIC DISORDER
     Route: 050
  3. HALOPERIDOL [Suspect]
     Indication: PSYCHOTIC DISORDER
     Route: 065
  4. HALOPERIDOL DECANOATE [Suspect]
     Indication: PSYCHOTIC DISORDER
     Route: 030
  5. TAXILAN [Concomitant]
     Route: 065
  6. FLUPHENAZINE [Concomitant]
     Route: 065
  7. TAVOR [Concomitant]
     Route: 065
  8. BIPERIDEN [Concomitant]
     Route: 065
  9. BENPERIDOL [Concomitant]
     Route: 065
  10. CHLORPROTHIXENE [Concomitant]
     Route: 065
  11. NIPOLEPT [Concomitant]
     Route: 065
  12. ZYPREXA [Concomitant]
     Route: 065
  13. PERAZINE [Concomitant]
     Route: 065
  14. CLOZAPINE [Concomitant]
     Route: 065
  15. SEROQUEL [Concomitant]
     Route: 065
  16. PROMETHAZIN [Concomitant]
     Route: 065
  17. FLUANXOL NOS [Concomitant]
     Route: 065

REACTIONS (2)
  - Suicide attempt [Recovered/Resolved]
  - Drug ineffective [Recovered/Resolved]
